FAERS Safety Report 7475268-8 (Version None)
Quarter: 2011Q2

REPORT INFORMATION
  Report Type: 
  Country: None (occurrence: None)
  Receive Date: 20110509
  Receipt Date: 20110509
  Transmission Date: 20111010
  Serious: Yes (Hospitalization)
  Sender: FDA-Public Use
  Company Number: None

PATIENT
  Sex: Female
  Weight: 58.514 kg

DRUGS (2)
  1. FOSAMAX [Suspect]
     Indication: STEROID THERAPY
     Dosage: 70MG ONCE A WEEK PO
     Route: 048
     Dates: start: 20051025, end: 20100101
  2. FOSAMAX [Suspect]
     Indication: OSTEOPENIA
     Dosage: 70MG ONCE A WEEK PO
     Route: 048
     Dates: start: 20051025, end: 20100101

REACTIONS (1)
  - FEMUR FRACTURE [None]
